FAERS Safety Report 17960357 (Version 2)
Quarter: 2020Q3

REPORT INFORMATION
  Report Type: Report from Study
  Country: CA (occurrence: CA)
  Receive Date: 20200629
  Receipt Date: 20200723
  Transmission Date: 20201103
  Serious: Yes (Death, Other)
  Sender: FDA-Public Use
  Company Number: CA-HLS-202000787

PATIENT
  Age: 53 Year
  Sex: Male
  Weight: 55 kg

DRUGS (4)
  1. SENOKOT [Concomitant]
     Active Substance: SENNOSIDES
     Route: 065
  2. COLACE [Concomitant]
     Active Substance: DOCUSATE SODIUM
     Route: 065
  3. CLOZARIL [Suspect]
     Active Substance: CLOZAPINE
     Route: 048
     Dates: start: 20000810, end: 20200627
  4. EPIVAL [Concomitant]
     Active Substance: DIVALPROEX SODIUM
     Route: 065

REACTIONS (9)
  - Infection [Fatal]
  - Vomiting [Unknown]
  - Pneumonia [Unknown]
  - Intestinal obstruction [Unknown]
  - Faecaloma [Unknown]
  - Weight decreased [Unknown]
  - Death [Fatal]
  - Pneumonia aspiration [Fatal]
  - Constipation [Unknown]

NARRATIVE: CASE EVENT DATE: 201907
